FAERS Safety Report 4449993-7 (Version None)
Quarter: 2004Q3

REPORT INFORMATION
  Report Type: 
  Country: None (occurrence: None)
  Receive Date: 20040910
  Receipt Date: 20040526
  Transmission Date: 20050211
  Serious: Yes (Hospitalization)
  Sender: FDA-Public Use
  Company Number: S04-USA-03010-01

PATIENT
  Age: 73 Year
  Sex: Female

DRUGS (7)
  1. LEXAPRO [Suspect]
     Dosage: UNK
     Route: 065
     Dates: start: 20040401, end: 20040401
  2. TUMS E-X(CALCIUM CARBONATE) [Suspect]
     Indication: DIVERTICULITIS
     Dosage: UNK
     Route: 065
     Dates: start: 20000101
  3. POTASSIUM [Concomitant]
  4. PRILOSEC [Concomitant]
  5. XANAX [Concomitant]
  6. CITRUCEL (METHYLCELLULOSE) [Concomitant]
  7. ZOCOR [Concomitant]

REACTIONS (3)
  - ATRIAL FIBRILLATION [None]
  - BLEEDING TIME PROLONGED [None]
  - HYPERSENSITIVITY [None]
